FAERS Safety Report 24431102 (Version 3)
Quarter: 2024Q4

REPORT INFORMATION
  Report Type: Report from Study
  Country: CA (occurrence: CA)
  Receive Date: 20241014
  Receipt Date: 20241021
  Transmission Date: 20250115
  Serious: Yes (Other)
  Sender: JOHNSON AND JOHNSON
  Company Number: CA-JNJFOC-20241026314

PATIENT
  Age: 14 Year
  Sex: Male
  Weight: 51 kg

DRUGS (2)
  1. REMICADE [Suspect]
     Active Substance: INFLIXIMAB
     Indication: Crohn^s disease
     Route: 041
     Dates: start: 20190423
  2. CORTISONE [Concomitant]
     Active Substance: CORTISONE
     Dosage: INTRANASAL INHALERS

REACTIONS (3)
  - Pneumonia [Recovering/Resolving]
  - Otitis media [Recovering/Resolving]
  - Lymphadenopathy [Not Recovered/Not Resolved]

NARRATIVE: CASE EVENT DATE: 20240101
